FAERS Safety Report 8195453-X (Version None)
Quarter: 2012Q1

REPORT INFORMATION
  Report Type: 
  Country: None (occurrence: None)
  Receive Date: 20120308
  Receipt Date: 20120229
  Transmission Date: 20120608
  Serious: Yes (Hospitalization)
  Sender: FDA-Public Use
  Company Number: PHHO2011AR15545

PATIENT
  Sex: Female
  Weight: 50.4 kg

DRUGS (3)
  1. PREDNISONE TAB [Suspect]
     Indication: RENAL TRANSPLANT
     Dosage: 40 MG, QD
     Dates: start: 20110829, end: 20110911
  2. PROGRAF [Suspect]
     Indication: RENAL TRANSPLANT
     Dosage: 8 MG, BID
     Dates: start: 20110830, end: 20110911
  3. MYFORTIC [Suspect]
     Indication: RENAL TRANSPLANT
     Dosage: 1440 MG, BID
     Dates: start: 20110827, end: 20110911

REACTIONS (1)
  - GRAND MAL CONVULSION [None]
